FAERS Safety Report 9712645 (Version 3)
Quarter: 2014Q2

REPORT INFORMATION
  Report Type: Report from Study
  Country: US (occurrence: US)
  Receive Date: 20131126
  Receipt Date: 20140516
  Transmission Date: 20141212
  Serious: Yes (Hospitalization, Other)
  Sender: FDA-Public Use
  Company Number: PHEH2012US024868

PATIENT
  Age: 67 Year
  Sex: Female

DRUGS (1)
  1. CLOZARIL [Suspect]
     Dosage: 400 MG, DAILY

REACTIONS (6)
  - Infective exacerbation of chronic obstructive airways disease [Unknown]
  - Neck mass [Unknown]
  - Salivary gland neoplasm [Unknown]
  - White blood cell count increased [Unknown]
  - Neutrophil count increased [Unknown]
  - Pneumonia [Unknown]
